FAERS Safety Report 9643269 (Version 1)
Quarter: 2013Q4

REPORT INFORMATION
  Report Type: Spontaneous
  Country: US (occurrence: US)
  Receive Date: 20131024
  Receipt Date: 20131024
  Transmission Date: 20140711
  Serious: No
  Sender: FDA-Public Use
  Company Number: US-009507513-1310USA010160

PATIENT
  Sex: Male

DRUGS (3)
  1. AFRIN SEVERE CONGESTION SPRAY WITH MENTHOL [Suspect]
     Indication: PRODUCT USED FOR UNKNOWN INDICATION
     Dosage: UNK, UNKNOWN
     Route: 045
  2. AFRIN SEVERE CONGESTION SPRAY WITH MENTHOL [Suspect]
     Dosage: UNK, UNKNOWN
     Route: 045
  3. AFRIN SEVERE CONGESTION SPRAY WITH MENTHOL [Suspect]
     Dosage: UNK, UNKNOWN
     Route: 045

REACTIONS (2)
  - Product quality issue [Unknown]
  - Accidental exposure to product [Unknown]
